FAERS Safety Report 26182337 (Version 1)
Quarter: 2025Q4

REPORT INFORMATION
  Report Type: Spontaneous
  Country: US (occurrence: US)
  Receive Date: 20251221
  Receipt Date: 20251221
  Transmission Date: 20260117
  Serious: No
  Sender: ELI LILLY AND COMPANY
  Company Number: US-ELI_LILLY_AND_COMPANY-US202512020870

PATIENT
  Age: 59 Year
  Sex: Male

DRUGS (2)
  1. CIALIS [Suspect]
     Active Substance: TADALAFIL
     Indication: Prostatic disorder
     Dosage: 20 MG, UNKNOWN
     Route: 065
     Dates: start: 2003, end: 2020
  2. CIALIS [Suspect]
     Active Substance: TADALAFIL
     Dosage: 20 MG, UNKNOWN
     Route: 065

REACTIONS (4)
  - Thyroid disorder [Unknown]
  - Skin lesion [Unknown]
  - Prostatic specific antigen increased [Unknown]
  - Wrong technique in product usage process [Unknown]
